FAERS Safety Report 23287700 (Version 1)
Quarter: 2023Q4

REPORT INFORMATION
  Report Type: Spontaneous
  Country: US (occurrence: US)
  Receive Date: 20231212
  Receipt Date: 20231212
  Transmission Date: 20240109
  Serious: No
  Sender: FDA-Public Use
  Company Number: US-ELI_LILLY_AND_COMPANY-US202312006366

PATIENT
  Sex: Female

DRUGS (3)
  1. FORTEO [Suspect]
     Active Substance: TERIPARATIDE
     Indication: Bone densitometry
     Dosage: 20 UG, OTHER (EVERY OTHER DAY)
     Route: 058
     Dates: start: 20231114, end: 20231126
  2. FORTEO [Suspect]
     Active Substance: TERIPARATIDE
     Indication: Compression fracture
  3. FORTEO [Suspect]
     Active Substance: TERIPARATIDE
     Indication: Haemangioma

REACTIONS (5)
  - Fatigue [Unknown]
  - Tremor [Unknown]
  - COVID-19 [Recovering/Resolving]
  - Off label use [Unknown]
  - Inappropriate schedule of product administration [Unknown]
